FAERS Safety Report 14308060 (Version 1)
Quarter: 2017Q4

REPORT INFORMATION
  Report Type: Other
  Country: US (occurrence: US)
  Receive Date: 20171220
  Receipt Date: 20171220
  Transmission Date: 20180321
  Serious: Yes (Death, Hospitalization, Other)
  Sender: FDA-Public Use
  Company Number: US-VELOXIS PHARMACEUTICALS-2037469

PATIENT
  Age: 17 Year
  Sex: Male

DRUGS (15)
  1. METHOTREXATE. [Concomitant]
     Active Substance: METHOTREXATE
  2. VALACYCLOVIR HYDROCHLORIDE. [Concomitant]
     Active Substance: VALACYCLOVIR HYDROCHLORIDE
  3. ALEMTUZUMAB [Concomitant]
     Active Substance: ALEMTUZUMAB
  4. ENALAPRIL [Concomitant]
     Active Substance: ENALAPRIL
  5. VITAMIN D3DIETARY SUPPLEMEN DIETARY SUPPLEMENT [Concomitant]
     Active Substance: ALPHA-TOCOPHEROL\CHOLECALCIFEROL
  6. BUSULFAN. [Concomitant]
     Active Substance: BUSULFAN
  7. OXYCODONE [Concomitant]
     Active Substance: OXYCODONE
  8. ALPRAZOLAM. [Concomitant]
     Active Substance: ALPRAZOLAM
  9. BUDESONIDE. [Concomitant]
     Active Substance: BUDESONIDE
  10. FLUDARABINE [Concomitant]
     Active Substance: FLUDARABINE PHOSPHATE
  11. HYDROCORTISONE. [Concomitant]
     Active Substance: HYDROCORTISONE
  12. FLUCONAZOLE. [Concomitant]
     Active Substance: FLUCONAZOLE
  13. ENVARSUS XR [Suspect]
     Active Substance: TACROLIMUS
     Indication: PROPHYLAXIS AGAINST GRAFT VERSUS HOST DISEASE
  14. LEVOFLOXACIN. [Concomitant]
     Active Substance: LEVOFLOXACIN
  15. LEVETIRACETAM. [Concomitant]
     Active Substance: LEVETIRACETAM

REACTIONS (9)
  - Inappropriate antidiuretic hormone secretion [Not Recovered/Not Resolved]
  - Intentional product use issue [Unknown]
  - Encephalitis protozoal [Fatal]
  - Graft versus host disease in gastrointestinal tract [Recovered/Resolved]
  - Adrenal insufficiency [Not Recovered/Not Resolved]
  - Brain herniation [Not Recovered/Not Resolved]
  - Varicella zoster virus infection [Recovering/Resolving]
  - Cushingoid [Not Recovered/Not Resolved]
  - Circulatory collapse [Not Recovered/Not Resolved]
